FAERS Safety Report 8955851 (Version 1)
Quarter: 2012Q4

REPORT INFORMATION
  Report Type: 
  Country: US (occurrence: US)
  Receive Date: 20121210
  Receipt Date: 20121210
  Transmission Date: 20130627
  Serious: No
  Sender: FDA-Public Use
  Company Number: US-PFIZER INC-2004087163

PATIENT
  Age: 83 Year
  Sex: Female

DRUGS (4)
  1. MOTRIN [Suspect]
     Indication: SHOULDER PAIN
     Dosage: 400 mg,  3 in 1 day
     Route: 048
     Dates: start: 20040817
  2. MOTRIN [Suspect]
     Indication: PAIN
  3. VALSARTAN [Concomitant]
     Dosage: UNK
  4. ALENDRONATE SODIUM [Concomitant]
     Dosage: UNK

REACTIONS (1)
  - Tinnitus [Unknown]
